FAERS Safety Report 8473683 (Version 2)
Quarter: 2013Q3

REPORT INFORMATION
  Report Type: Spontaneous
  Country: TR (occurrence: None)
  Receive Date: 20120316
  Receipt Date: 20130814
  Transmission Date: 20140515
  Serious: Yes (Other)
  Sender: FDA-Public Use
  Company Number: AXC-2012-000099

PATIENT
  Sex: Female

DRUGS (1)
  1. URSODEOXYCHOLATE SODIUM [Suspect]
     Indication: CHOLESTASIS OF PREGNANCY
     Dosage: 10-15 MG/KG/DAY, ORAL
     Route: 048

REACTIONS (2)
  - Premature labour [None]
  - Maternal exposure during pregnancy [None]
